FAERS Safety Report 4378934-6 (Version None)
Quarter: 2004Q2

REPORT INFORMATION
  Report Type: 
  Country: None (occurrence: None)
  Receive Date: 20040610
  Receipt Date: 20040528
  Transmission Date: 20050107
  Serious: Yes (Hospitalization)
  Sender: FDA-Public Use
  Company Number: 2004032918

PATIENT
  Sex: Male

DRUGS (5)
  1. ZELDOX [Suspect]
     Indication: PSYCHOTIC DISORDER
     Dosage: 40 MG, ORAL
     Route: 048
     Dates: start: 20040517, end: 20040517
  2. ALL OTHER THERAPEUTIC PRODUCTS (ALL OTHER THERAPEUTIC PRODUCTS) [Concomitant]
  3. VITAMIN NOS (VITAMIN NOS) [Concomitant]
  4. AMITRIPTYLINE HCL [Concomitant]
  5. METHYLPREDNISOLONE [Concomitant]

REACTIONS (10)
  - ABDOMINAL PAIN [None]
  - BLINDNESS UNILATERAL [None]
  - CSF WHITE BLOOD CELL COUNT POSITIVE [None]
  - EYE PRURITUS [None]
  - EYELID OEDEMA [None]
  - FLATULENCE [None]
  - HEMIPLEGIA [None]
  - MULTIPLE SCLEROSIS [None]
  - PYREXIA [None]
  - RESPIRATORY FAILURE [None]
